FAERS Safety Report 7535503-4 (Version None)
Quarter: 2011Q2

REPORT INFORMATION
  Report Type: 
  Country: None (occurrence: None)
  Receive Date: 20110609
  Receipt Date: 20101227
  Transmission Date: 20111010
  Serious: Yes (Hospitalization, Other)
  Sender: FDA-Public Use
  Company Number: US-BAYER-201018633NA

PATIENT
  Age: 28 Year
  Sex: Female
  Weight: 77.098 kg

DRUGS (13)
  1. SERTRALINE HYDROCHLORIDE [Concomitant]
  2. VICODIN [Concomitant]
  3. YAZ [Suspect]
     Indication: MENSTRUATION IRREGULAR
     Dosage: UNK
     Dates: start: 20080401, end: 20090801
  4. ZOLOFT [Concomitant]
  5. CLONAZEPAM [Concomitant]
     Dosage: 0.5 MG, PRN
  6. ZOLOFT [Concomitant]
     Dosage: 50 MG, QD
  7. YASMIN [Suspect]
     Indication: PRODUCT USED FOR UNKNOWN INDICATION
     Dosage: AS USED DOSE: UNK
     Route: 048
     Dates: start: 20080401
  8. YAZ [Suspect]
     Indication: CONTRACEPTION
  9. NAPROXEN (ALEVE) [Concomitant]
     Dosage: OCCASIONALLY
  10. CEFACLOR [Concomitant]
  11. KEFLEX [Concomitant]
     Dosage: 250 MG, Q4HR
     Dates: start: 20081129
  12. CEPHALEXIN [Concomitant]
  13. KEFLEX [Concomitant]
     Indication: PHARYNGITIS STREPTOCOCCAL
     Dosage: UNK
     Dates: start: 20091101

REACTIONS (3)
  - CHOLECYSTITIS CHRONIC [None]
  - CHOLELITHIASIS [None]
  - PANCREATITIS [None]
